FAERS Safety Report 15608266 (Version 5)
Quarter: 2020Q4

REPORT INFORMATION
  Report Type: Report from Study
  Country: CN (occurrence: CN)
  Receive Date: 20181112
  Receipt Date: 20201208
  Transmission Date: 20210113
  Serious: Yes (Death, Life-Threatening, Hospitalization)
  Sender: FDA-Public Use
  Company Number: CN-ASTRAZENECA-2018SF42958

PATIENT
  Age: 23343 Day
  Sex: Male

DRUGS (43)
  1. DURVALUMAB. [Suspect]
     Active Substance: DURVALUMAB
     Indication: SMALL CELL LUNG CANCER
     Route: 042
     Dates: start: 20181016, end: 20181016
  2. TROPISETRON HYDROCHLORIDE [Concomitant]
     Active Substance: TROPISETRON HYDROCHLORIDE
     Indication: PROPHYLAXIS OF NAUSEA AND VOMITING
  3. FUROSEMIDE INJECTION [Concomitant]
     Active Substance: FUROSEMIDE
     Indication: MICTURITION DISORDER
     Dosage: 20.00 MG
     Dates: start: 20181104, end: 20181104
  4. 10% POTASSIUM CHLORIDE [Concomitant]
     Active Substance: POTASSIUM CHLORIDE
     Indication: ANTI-INFECTIVE THERAPY
     Dosage: 30.00 ML
     Route: 048
     Dates: start: 20181030, end: 20181104
  5. ETOPOSIDE. [Suspect]
     Active Substance: ETOPOSIDE
     Indication: SMALL CELL LUNG CANCER
     Dosage: 100 MG/M2
     Route: 065
     Dates: start: 20181018, end: 20181018
  6. APREPITANT CAPSULE [Concomitant]
     Indication: PREMEDICATION
     Dosage: 1.00 10. CAPSULE MG
  7. APREPITANT CAPSULE [Concomitant]
     Indication: PREMEDICATION
     Dosage: 1.00 10. CAPSULE MG
  8. FUROSEMIDE INJECTION [Concomitant]
     Active Substance: FUROSEMIDE
     Indication: MICTURITION DISORDER
     Dosage: 20.00 MG
     Dates: start: 20181017, end: 20181017
  9. FUROSEMIDE INJECTION [Concomitant]
     Active Substance: FUROSEMIDE
     Indication: MICTURITION DISORDER
     Dosage: 20.00 MG
     Dates: start: 20181019, end: 20181019
  10. FUROSEMIDE INJECTION [Concomitant]
     Active Substance: FUROSEMIDE
     Indication: MICTURITION DISORDER
     Dosage: 20.00 MG
     Dates: start: 20181019, end: 20181019
  11. 10% POTASSIUM CHLORIDE [Concomitant]
     Active Substance: POTASSIUM CHLORIDE
     Indication: ANTI-INFECTIVE THERAPY
     Dosage: 30.00 ML
     Route: 048
     Dates: start: 20181030, end: 20181104
  12. DOXOFYLLINE [Concomitant]
     Active Substance: DOXOFYLLINE
     Indication: PNEUMONIA
     Dosage: 0.20 G
     Dates: start: 20181101, end: 20181104
  13. LANSOPRAZOLE. [Concomitant]
     Active Substance: LANSOPRAZOLE
     Indication: PREMEDICATION
     Dosage: 30.00 20 MG MG ML MG
  14. MIXED SUGAR ELECTROLYTE INJECTION [Concomitant]
     Indication: PREMEDICATION
  15. FUROSEMIDE INJECTION [Concomitant]
     Active Substance: FUROSEMIDE
     Indication: MICTURITION DISORDER
     Dosage: 20.00 MG
     Dates: start: 20181017, end: 20181017
  16. DOXOFYLLINE [Concomitant]
     Active Substance: DOXOFYLLINE
     Indication: PNEUMONIA
     Dosage: 0.20 G
     Dates: start: 20181101, end: 20181104
  17. TROPISETRON HYDROCHLORIDE [Concomitant]
     Active Substance: TROPISETRON HYDROCHLORIDE
     Indication: PROPHYLAXIS OF NAUSEA AND VOMITING
  18. CODEINE CARBONATE TABLETS [Concomitant]
     Indication: SMALL CELL LUNG CANCER
     Dosage: 30.00 MG
     Route: 048
     Dates: start: 20181021, end: 20181021
  19. MEROPENEM. [Concomitant]
     Active Substance: MEROPENEM
     Indication: PNEUMONIA
     Dosage: 500.00 MG
     Dates: start: 20181101, end: 20181104
  20. ETOPOSIDE. [Suspect]
     Active Substance: ETOPOSIDE
     Indication: SMALL CELL LUNG CANCER
     Dosage: 100 MG/M2
     Route: 065
     Dates: start: 20181017, end: 20181017
  21. MANNITOL INJECTION [Concomitant]
     Indication: PROPHYLAXIS OF NAUSEA AND VOMITING
     Dosage: 250.00 ML
     Dates: start: 20181016, end: 20181016
  22. FUROSEMIDE INJECTION [Concomitant]
     Active Substance: FUROSEMIDE
     Indication: MICTURITION DISORDER
     Dosage: 20.00 MG
     Dates: start: 20181017, end: 20181017
  23. FUROSEMIDE INJECTION [Concomitant]
     Active Substance: FUROSEMIDE
     Indication: MICTURITION DISORDER
     Dosage: 20.00 MG
     Dates: start: 20181018, end: 20181018
  24. FUROSEMIDE INJECTION [Concomitant]
     Active Substance: FUROSEMIDE
     Indication: MICTURITION DISORDER
     Dosage: 20.00 MG
     Dates: start: 20181019, end: 20181019
  25. RECOMBINANT HUMAN GRANULOCYTE STIMULATING FACTOR [Concomitant]
     Indication: MYELOSUPPRESSION
     Dosage: 300.00 0 UG G
  26. LANSOPRAZOLE. [Concomitant]
     Active Substance: LANSOPRAZOLE
     Indication: PREMEDICATION
     Dosage: 30.00 20 MG MG ML MG
  27. MIXED SUGAR ELECTROLYTE INJECTION [Concomitant]
     Indication: PREMEDICATION
  28. FUROSEMIDE INJECTION [Concomitant]
     Active Substance: FUROSEMIDE
     Indication: MICTURITION DISORDER
     Dosage: 20.00 MG
     Dates: start: 20181018, end: 20181018
  29. FUROSEMIDE INJECTION [Concomitant]
     Active Substance: FUROSEMIDE
     Indication: MICTURITION DISORDER
     Dosage: 20.00 MG
     Dates: start: 20181018, end: 20181018
  30. FUROSEMIDE INJECTION [Concomitant]
     Active Substance: FUROSEMIDE
     Indication: MICTURITION DISORDER
     Dosage: 20.00 MG
     Dates: start: 20181018, end: 20181018
  31. FUROSEMIDE INJECTION [Concomitant]
     Active Substance: FUROSEMIDE
     Indication: MICTURITION DISORDER
     Dosage: 20.00 MG
     Dates: start: 20181019, end: 20181019
  32. RECOMBINANT HUMAN GRANULOCYTE STIMULATING FACTOR [Concomitant]
     Indication: MYELOSUPPRESSION
     Dosage: 300.00 0 UG G
  33. FUROSEMIDE INJECTION [Concomitant]
     Active Substance: FUROSEMIDE
     Indication: MICTURITION DISORDER
     Dosage: 20.00 MG
     Dates: start: 20181017, end: 20181017
  34. FUROSEMIDE INJECTION [Concomitant]
     Active Substance: FUROSEMIDE
     Indication: MICTURITION DISORDER
     Dosage: 20.00 MG
     Dates: start: 20181104, end: 20181104
  35. FUROSEMIDE INJECTION [Concomitant]
     Active Substance: FUROSEMIDE
     Indication: MICTURITION DISORDER
     Dosage: 20.00 MG
     Dates: start: 20181104, end: 20181104
  36. FUROSEMIDE INJECTION [Concomitant]
     Active Substance: FUROSEMIDE
     Indication: MICTURITION DISORDER
     Dosage: 20.00 MG
     Dates: start: 20181104, end: 20181104
  37. DOXOFYLLINE [Concomitant]
     Active Substance: DOXOFYLLINE
     Indication: PNEUMONIA
     Dosage: 0.20 G
     Dates: start: 20181030, end: 20181030
  38. DOXOFYLLINE [Concomitant]
     Active Substance: DOXOFYLLINE
     Indication: PNEUMONIA
     Dosage: 0.20 G
     Dates: start: 20181030, end: 20181030
  39. MAGNESIUM ISOGLYCYRRHIZINATE INJECTION [Concomitant]
     Indication: LIVER DISORDER
     Dosage: 200.00 MG
     Dates: start: 20181101, end: 20181102
  40. CISPLATIN. [Suspect]
     Active Substance: CISPLATIN
     Indication: SMALL CELL LUNG CANCER
     Dosage: 74 MG/M2
     Route: 065
     Dates: start: 20181016, end: 20181016
  41. ETOPOSIDE. [Suspect]
     Active Substance: ETOPOSIDE
     Indication: SMALL CELL LUNG CANCER
     Dosage: 100 MG/M2
     Route: 065
     Dates: start: 20181016, end: 20181016
  42. MAGNESIUM ISOGLYCYRRHIZINATE INJECTION [Concomitant]
     Indication: LIVER DISORDER
     Dosage: 200.00 MG
     Dates: start: 20181101, end: 20181102
  43. LEVOFLOXACIN INJECTION [Concomitant]
     Active Substance: LEVOFLOXACIN

REACTIONS (2)
  - Pneumonia [Fatal]
  - Myelosuppression [Not Recovered/Not Resolved]

NARRATIVE: CASE EVENT DATE: 20181027
